FAERS Safety Report 4540524-X (Version None)
Quarter: 2004Q4

REPORT INFORMATION
  Report Type: 
  Country: None (occurrence: None)
  Receive Date: 20041228
  Receipt Date: 20041228
  Transmission Date: 20050328
  Serious: No
  Sender: FDA-Public Use
  Company Number: None

PATIENT
  Age: 76 Year
  Sex: Female
  Weight: 77.5651 kg

DRUGS (2)
  1. COZAAR [Suspect]
     Indication: HYPERTENSION
     Dosage: PO QD
     Route: 048
  2. ATACAND [Concomitant]

REACTIONS (4)
  - BLOOD PRESSURE INCREASED [None]
  - PAIN IN EXTREMITY [None]
  - PRURITUS [None]
  - RASH [None]
